FAERS Safety Report 5175583-7 (Version None)
Quarter: 2006Q4

REPORT INFORMATION
  Report Type: 
  Country: None (occurrence: None)
  Receive Date: 20061212
  Receipt Date: 20061212
  Transmission Date: 20070319
  Serious: No
  Sender: FDA-Public Use
  Company Number: None

PATIENT
  Age: 34 Year
  Sex: Male

DRUGS (3)
  1. LISINOPRIL [Suspect]
     Dosage: TABLET
  2. PREDNISONE TAB [Suspect]
     Dosage: TABLET
  3. VALTREX [Suspect]
     Dosage: TABLET

REACTIONS (4)
  - DRUG DISPENSING ERROR [None]
  - FATIGUE [None]
  - MEDICATION ERROR [None]
  - WRONG DRUG ADMINISTERED [None]
